FAERS Safety Report 6618650-0 (Version None)
Quarter: 2010Q1

REPORT INFORMATION
  Report Type: 
  Country: None (occurrence: None)
  Receive Date: 20100305
  Receipt Date: 20100305
  Transmission Date: 20100710
  Serious: Yes (Hospitalization)
  Sender: FDA-Public Use
  Company Number: None

PATIENT
  Age: 77 Year
  Sex: Female

DRUGS (1)
  1. NAPROXEN [Suspect]
     Indication: ARTHRITIS
     Dosage: X1 PO
     Route: 048
     Dates: start: 20100223

REACTIONS (3)
  - DYSPNOEA [None]
  - RASH [None]
  - TONGUE DISORDER [None]
